FAERS Safety Report 14199702 (Version 3)
Quarter: 2017Q4

REPORT INFORMATION
  Report Type: Spontaneous
  Country: US (occurrence: US)
  Receive Date: 20171117
  Receipt Date: 20171222
  Transmission Date: 20180321
  Serious: Yes (Life-Threatening, Hospitalization, Other)
  Sender: FDA-Public Use
  Company Number: US-PFIZER INC-2017490402

PATIENT
  Age: 58 Year
  Sex: Female

DRUGS (15)
  1. BACLOPHEN [Concomitant]
     Dosage: 8 TIMES DAILY ON HER NECK AND IN HER MOUTH
     Route: 061
  2. DICLOFENAC [Concomitant]
     Active Substance: DICLOFENAC
     Dosage: 8 TIMES DAILY ON HER NECK AND IN HER MOUTH
     Route: 061
  3. AMITRIPTYLINE [Interacting]
     Active Substance: AMITRIPTYLINE
     Dosage: 8 TIMES DAILY ON HER NECK AND IN HER MOUTH
     Route: 061
  4. RIFAXIMIN. [Concomitant]
     Active Substance: RIFAXIMIN
     Dosage: 550 MG, 2X/DAY
     Route: 048
  5. LIDOCAINE. [Concomitant]
     Active Substance: LIDOCAINE
     Indication: MOUTH ULCERATION
     Dosage: UNK
     Route: 061
  6. BACLOPHEN [Concomitant]
     Indication: NECK PAIN
     Dosage: 3 TO 4 TIMES DAILY AS NEEDED
     Route: 061
  7. LIDOCAINE. [Concomitant]
     Active Substance: LIDOCAINE
     Indication: NECK PAIN
     Dosage: 3 TO 4 TIMES DAILY AS NEEDED
     Route: 061
  8. VENLAFAXINE HCL [Suspect]
     Active Substance: VENLAFAXINE HYDROCHLORIDE
     Indication: DEPRESSION
     Dosage: 75 MG, 2X/DAY
     Route: 048
  9. DICLOFENAC [Concomitant]
     Active Substance: DICLOFENAC
     Indication: NECK PAIN
     Dosage: 3 TO 4 TIMES DAILY AS NEEDED
     Route: 061
  10. LACTULOSE. [Concomitant]
     Active Substance: LACTULOSE
     Dosage: 10 G, 3X/DAY
     Route: 048
  11. LIDOCAINE. [Concomitant]
     Active Substance: LIDOCAINE
     Dosage: 8 TIMES DAILY ON HER NECK AND IN HER MOUTH
     Route: 061
  12. PANTOPRAZOLE [Concomitant]
     Active Substance: PANTOPRAZOLE
     Dosage: 40 MG, 1X/DAY (EVERY MORNING)
     Route: 048
  13. VENLAFAXINE HCL [Interacting]
     Active Substance: VENLAFAXINE HYDROCHLORIDE
     Dosage: 300 MG, DAILY (MOST LIKELY)
     Route: 048
  14. VENLAFAXINE HCL [Interacting]
     Active Substance: VENLAFAXINE HYDROCHLORIDE
     Dosage: 75 MG, UNK (RETRIAL)
  15. AMITRIPTYLINE [Interacting]
     Active Substance: AMITRIPTYLINE
     Indication: NECK PAIN
     Dosage: (3 TO 4 TIMES DAILY AS NEEDED)
     Route: 061

REACTIONS (3)
  - Drug interaction [Recovered/Resolved]
  - Overdose [Recovered/Resolved]
  - Serotonin syndrome [Recovered/Resolved]
